FAERS Safety Report 8890184 (Version 1)
Quarter: 2012Q4

REPORT INFORMATION
  Report Type: 
  Country: CA (occurrence: CA)
  Receive Date: 20121106
  Receipt Date: 20121106
  Transmission Date: 20130627
  Serious: Yes (Other)
  Sender: FDA-Public Use
  Company Number: PHMT2006CA01934

PATIENT
  Sex: Male

DRUGS (2)
  1. SANDOSTATIN LAR [Suspect]
     Indication: GASTRINOMA
     Dosage: 20 mg,once a month
     Dates: start: 20060606
  2. PANTOPRAZOLE [Concomitant]

REACTIONS (6)
  - Weight decreased [Unknown]
  - Hypertension [Unknown]
  - Injection site reaction [Unknown]
  - Injection site mass [Unknown]
  - Heart rate increased [Unknown]
  - Blood glucose increased [Unknown]
